FAERS Safety Report 6803316-4 (Version None)
Quarter: 2010Q2

REPORT INFORMATION
  Report Type: 
  Country: None (occurrence: None)
  Receive Date: 20100628
  Receipt Date: 20100619
  Transmission Date: 20101027
  Serious: Yes (Hospitalization)
  Sender: FDA-Public Use
  Company Number: US-AMGEN-KDL420419

PATIENT
  Sex: Female
  Weight: 53.6 kg

DRUGS (7)
  1. PROCRIT [Suspect]
     Indication: ANAEMIA
     Route: 058
     Dates: start: 20070101
  2. ASPIRIN [Concomitant]
     Route: 048
  3. HUMULIN R [Concomitant]
     Route: 058
  4. LANTUS [Concomitant]
     Route: 058
  5. HYDRALAZINE HCL [Concomitant]
     Route: 048
  6. TYLENOL [Concomitant]
     Route: 048
  7. IMDUR [Concomitant]
     Route: 048
     Dates: start: 20080101

REACTIONS (4)
  - BLOOD COUNT ABNORMAL [None]
  - DRUG DISPENSING ERROR [None]
  - FALL [None]
  - MEDICATION ERROR [None]
